FAERS Safety Report 8772984 (Version 1)
Quarter: 2012Q4

REPORT INFORMATION
  Report Type: 
  Country: DE (occurrence: DE)
  Receive Date: 20120907
  Receipt Date: 20120907
  Transmission Date: 20130627
  Serious: Yes (Death, Congenital Anomaly)
  Sender: FDA-Public Use
  Company Number: DE-RANBAXY-2012RR-59676

PATIENT
  Sex: Male
  Weight: .14 kg

DRUGS (2)
  1. SUMATRIPTAN [Suspect]
     Dosage: on demand
     Route: 064
     Dates: start: 20110609, end: 20111007
  2. FOLIO FORTE [Concomitant]
     Indication: PROPHYLAXIS OF NEURAL TUBE DEFECT
     Dosage: 0.8 mg/day
     Route: 064

REACTIONS (1)
  - Renal aplasia [Fatal]
